FAERS Safety Report 15633030 (Version 1)
Quarter: 2018Q4

REPORT INFORMATION
  Report Type: Spontaneous
  Country: SE (occurrence: SE)
  Receive Date: 20181119
  Receipt Date: 20181119
  Transmission Date: 20190205
  Serious: Yes (Other)
  Sender: FDA-Public Use
  Company Number: SE-TEVA-2018-SE-976297

PATIENT
  Age: 74 Year
  Sex: Female

DRUGS (2)
  1. VANCOMYCIN ACTAVIS 1000 MG PULVER TILL KONCENTRAT TILL INFUSIONSV?TSKA [Suspect]
     Active Substance: VANCOMYCIN
     Indication: ENDOCARDITIS
     Dosage: 1000.0 MG 270VAR24T
     Route: 042
     Dates: start: 20181004
  2. VANCOMYCIN ACTAVIS 1000 MG PULVER TILL KONCENTRAT TILL INFUSIONSV?TSKA [Suspect]
     Active Substance: VANCOMYCIN
     Indication: WOUND INFECTION
     Route: 042
     Dates: start: 20180930, end: 20181003

REACTIONS (1)
  - Acute kidney injury [Not Recovered/Not Resolved]

NARRATIVE: CASE EVENT DATE: 20181004
